FAERS Safety Report 24804099 (Version 1)
Quarter: 2025Q1

REPORT INFORMATION
  Report Type: Spontaneous
  Country: US (occurrence: US)
  Receive Date: 20250103
  Receipt Date: 20250103
  Transmission Date: 20250408
  Serious: No
  Sender: SANOFI AVENTIS
  Company Number: US-SA-2025SA001983

PATIENT
  Age: 69 Year
  Sex: Male
  Weight: 77.5 kg

DRUGS (17)
  1. DUPIXENT [Suspect]
     Active Substance: DUPILUMAB
     Indication: Dermatitis atopic
     Dosage: 300 MG, QOW
     Dates: start: 20241112
  2. VITAMINS [Concomitant]
     Active Substance: VITAMINS
     Dosage: QD
  3. NASONEX [Concomitant]
     Active Substance: MOMETASONE FUROATE
  4. NORVASC [Concomitant]
     Active Substance: AMLODIPINE BESYLATE
  5. TYLENOL [Concomitant]
     Active Substance: ACETAMINOPHEN
  6. VITAMIN D3 [Concomitant]
     Active Substance: CHOLECALCIFEROL
  7. WELLBUTRIN XL [Concomitant]
     Active Substance: BUPROPION HYDROCHLORIDE
  8. TRIAMCINOLONE ACETONIDE [Concomitant]
     Active Substance: TRIAMCINOLONE ACETONIDE
  9. VILAZODONE HYDROCHLORIDE [Concomitant]
     Active Substance: VILAZODONE HYDROCHLORIDE
  10. LAMOTRIGINE [Concomitant]
     Active Substance: LAMOTRIGINE
  11. LOSARTAN POTASSIUM [Concomitant]
     Active Substance: LOSARTAN POTASSIUM
  12. INDAPAMIDE [Concomitant]
     Active Substance: INDAPAMIDE
  13. SYNTHROID [Concomitant]
     Active Substance: LEVOTHYROXINE SODIUM
  14. TACROLIMUS [Concomitant]
     Active Substance: TACROLIMUS
  15. CLONAZEPAM [Concomitant]
     Active Substance: CLONAZEPAM
  16. AZITHROMYCIN [Concomitant]
     Active Substance: AZITHROMYCIN
  17. ATOVAQUONE\PROGUANIL [Concomitant]
     Active Substance: ATOVAQUONE\PROGUANIL

REACTIONS (2)
  - Pruritus [Not Recovered/Not Resolved]
  - Dermatitis atopic [Not Recovered/Not Resolved]

NARRATIVE: CASE EVENT DATE: 20240101
